FAERS Safety Report 7453334-0 (Version None)
Quarter: 2011Q2

REPORT INFORMATION
  Report Type: 
  Country: None (occurrence: None)
  Receive Date: 20110502
  Receipt Date: 20110425
  Transmission Date: 20111010
  Serious: Yes (Hospitalization)
  Sender: FDA-Public Use
  Company Number: US-PFIZER INC-2011089172

PATIENT
  Sex: Female
  Weight: 74.8 kg

DRUGS (4)
  1. LIPITOR [Suspect]
     Dosage: 40 MG, 1X/DAY
     Route: 048
     Dates: start: 20101201, end: 20110422
  2. TRIAMTERENE [Concomitant]
     Indication: HYPERTENSION
     Dosage: UNK
  3. CLONIDINE [Concomitant]
     Indication: HYPERTENSION
     Dosage: UNK
  4. LIPITOR [Suspect]
     Indication: BLOOD CHOLESTEROL INCREASED
     Dosage: 20 MG, 1X/DAY
     Route: 048
     Dates: start: 20060101, end: 20101201

REACTIONS (5)
  - BLOOD CHOLESTEROL INCREASED [None]
  - SCIATICA [None]
  - ARTHRALGIA [None]
  - HEADACHE [None]
  - PAIN IN EXTREMITY [None]
